FAERS Safety Report 7525271-4 (Version None)
Quarter: 2011Q2

REPORT INFORMATION
  Report Type: 
  Country: None (occurrence: None)
  Receive Date: 20110526
  Receipt Date: 20110510
  Transmission Date: 20111010
  Serious: Yes (Hospitalization)
  Sender: FDA-Public Use
  Company Number: 2011-0380

PATIENT
  Age: 68 Year
  Sex: Female

DRUGS (1)
  1. APO-GO AMPOULES (APO-GO) (APOMORPHINE HYDROCHLORIDE) (APOMORPHINE HYDR [Suspect]
     Indication: PARKINSON'S DISEASE
     Dosage: 3.5  MG/HOUR/14 HOURS/DAY (CONTINUOUS FOR 14 HOURS/DAY),SUBCUTANEOUS
     Route: 058
     Dates: start: 20100302

REACTIONS (7)
  - NARCOLEPSY [None]
  - TREMOR [None]
  - CHOREA [None]
  - MUSCLE RIGIDITY [None]
  - INFUSION SITE MASS [None]
  - HYPERKINESIA [None]
  - SOMNOLENCE [None]
